FAERS Safety Report 8374367-6 (Version None)
Quarter: 2012Q2

REPORT INFORMATION
  Report Type: 
  Country: None (occurrence: None)
  Receive Date: 20120521
  Receipt Date: 20120515
  Transmission Date: 20120825
  Serious: Yes (Hospitalization)
  Sender: FDA-Public Use
  Company Number: US-BAYER-2012-049076

PATIENT
  Age: 28 Year
  Sex: Female
  Weight: 69.841 kg

DRUGS (5)
  1. VENLAFAXINE [Concomitant]
  2. PROMETHAZINE [Concomitant]
     Dosage: 25 MG, UNK
     Route: 048
  3. AZITHROMYCIN [Concomitant]
     Dosage: 250 MG, UNK
  4. YAZ [Suspect]
  5. YASMIN [Suspect]

REACTIONS (1)
  - PULMONARY EMBOLISM [None]
